FAERS Safety Report 7377427-1 (Version None)
Quarter: 2011Q1

REPORT INFORMATION
  Report Type: 
  Country: None (occurrence: None)
  Receive Date: 20110328
  Receipt Date: 20110315
  Transmission Date: 20110831
  Serious: Yes (Hospitalization)
  Sender: FDA-Public Use
  Company Number: US-BAYER-2010-008996

PATIENT
  Sex: Female

DRUGS (39)
  1. NEXAVAR [Suspect]
     Indication: HEPATIC NEOPLASM MALIGNANT
     Dosage: 200 MG, BID
     Route: 048
     Dates: start: 20080801
  2. TRAMADOL [Concomitant]
     Dosage: UNK
     Dates: start: 20100812
  3. LANTUS [Concomitant]
     Dosage: UNK UNK, HS
     Dates: start: 20081215
  4. ALLOPURINOL [Concomitant]
     Dosage: UNK
     Dates: start: 20090527
  5. DRONABINOL [Concomitant]
     Dosage: UNK
     Dates: start: 20110113
  6. MORPHINE SULFATE [Concomitant]
     Dosage: UNK
     Dates: start: 20110107
  7. ONDANSETRON [Concomitant]
     Dosage: UNK
     Dates: start: 20101030
  8. NIASPAN [Concomitant]
     Dosage: DAILY DOSE 1000 MG
     Dates: start: 20080902
  9. JANUVIA [Concomitant]
     Dosage: DAILY DOSE 50 MG
     Dates: start: 20100902
  10. DRONABINOL [Concomitant]
     Dosage: UNK
     Dates: start: 20100901
  11. LEVAQUIN [Concomitant]
     Dosage: UNK
     Dates: start: 20101025
  12. METOPROLOL TARTRATE [Concomitant]
     Dosage: UNK MG, UNK
     Dates: start: 20100726
  13. DIPHENOXYLATE HCL AND ATROPINE SULFATE [Concomitant]
     Dosage: UNK
     Dates: start: 20101111
  14. MULTI-VITAMIN [Concomitant]
     Dosage: UNK UNK, QD
     Dates: start: 20080209
  15. ASPIRIN [Concomitant]
     Dosage: DAILY DOSE 325 MG
     Dates: start: 20080902
  16. ALLOPURINOL [Concomitant]
     Dosage: UNK
     Dates: start: 20100417
  17. JANUVIA [Concomitant]
     Dosage: 100 MG
     Dates: start: 20110223
  18. POTASSIUM CHLORIDE [Concomitant]
     Dosage: UNK
     Dates: start: 20101230
  19. VITAMIN D [Concomitant]
     Dosage: UNK
     Dates: start: 20101206
  20. TRIAMTERENE AND HYDROCHLOROTHIAZIDE [Concomitant]
     Dosage: UNK
     Dates: start: 20080902, end: 20090115
  21. LOMOTIL [DIPHENOXYLATE HYDROCHLORIDE] [Concomitant]
     Dosage: UNK
     Dates: start: 20091111
  22. HYDROCODONE BITARTRATE AND ACETAMINOPHEN [Concomitant]
     Dosage: UNK
     Dates: start: 20101230
  23. MAGNESIUM OXIDE [Concomitant]
     Dosage: UNK
     Dates: start: 20101230, end: 20110119
  24. OXYCODONE [Concomitant]
     Dosage: UNK
     Dates: start: 20101108
  25. AMLODIPINE BESYLATE [Concomitant]
     Dosage: UNK
     Dates: start: 20101025, end: 20101209
  26. TOPROL-XL [Concomitant]
     Dosage: DAILY DOSE 50 MG
     Dates: start: 20080902
  27. DIOVAN [Concomitant]
     Dosage: DAILY DOSE 160 MG
     Dates: start: 20080209
  28. PROMETHAZINE - CODEINE [CODEINE PHOSPHATE,PROMETHAZINE HYDROCHLORIDE] [Concomitant]
  29. NEXAVAR [Suspect]
     Dosage: 400 MG, BID
     Route: 048
     Dates: start: 20080903
  30. NEXAVAR [Suspect]
     Dosage: 200 MG, BID
     Route: 048
     Dates: start: 20090901
  31. CHOLESTYRAMINE [Concomitant]
     Dosage: UNK
     Dates: start: 20110114
  32. UNCODEABLE ^UNCLASSIFIABLE^ [Concomitant]
     Dosage: UNK
     Dates: start: 20101205
  33. AMLODIPINE BESYLATE [Concomitant]
     Dosage: UNK
     Dates: start: 20110309
  34. MARINOL [Concomitant]
     Dosage: UNK UNK, BID
     Dates: start: 20100809
  35. PROAIR HFA [Concomitant]
     Dosage: UNK
     Dates: start: 20110204
  36. METRONIDAZOLE [Concomitant]
     Dosage: UNK
     Dates: start: 20101025
  37. MARINOL [Concomitant]
  38. METOPROLOL [Concomitant]
     Dosage: UNK
     Dates: start: 20090527
  39. HYDROCHLOROTHIAZIDE [Concomitant]
     Dosage: DAILY DOSE 25 MG
     Dates: start: 20090115

REACTIONS (9)
  - FATIGUE [None]
  - ELECTROLYTE IMBALANCE [None]
  - GAIT DISTURBANCE [None]
  - PALMAR-PLANTAR ERYTHRODYSAESTHESIA SYNDROME [None]
  - NAUSEA [None]
  - PAIN IN EXTREMITY [None]
  - DYSPNOEA [None]
  - HEADACHE [None]
  - DIARRHOEA [None]
